FAERS Safety Report 5124264-4 (Version None)
Quarter: 2006Q4

REPORT INFORMATION
  Report Type: 
  Country: None (occurrence: None)
  Receive Date: 20060816
  Receipt Date: 20060504
  Transmission Date: 20070319
  Serious: No
  Sender: FDA-Public Use
  Company Number: US200604003369

PATIENT
  Age: 44 Year
  Sex: Male
  Weight: 99.8 kg

DRUGS (5)
  1. CIALIS [Suspect]
     Indication: ERECTILE DYSFUNCTION
     Dosage: AS NEEDED
     Dates: start: 20060406, end: 20060406
  2. PAXIL [Concomitant]
  3. TRAZODIL (TRAZODONE HYDROCHLORIDE) [Concomitant]
  4. WELLBUTRIN [Concomitant]
  5. RISPERIDONE [Concomitant]

REACTIONS (4)
  - DRUG INTERACTION [None]
  - NAUSEA [None]
  - PHOTOSENSITIVITY REACTION [None]
  - THINKING ABNORMAL [None]
